FAERS Safety Report 16758334 (Version 5)
Quarter: 2020Q2

REPORT INFORMATION
  Report Type: Spontaneous
  Country: FR (occurrence: FR)
  Receive Date: 20190830
  Receipt Date: 20200414
  Transmission Date: 20200713
  Serious: Yes (Life-Threatening, Other)
  Sender: FDA-Public Use
  Company Number: FR-AUROBINDO-AUR-APL-2019-056948

PATIENT
  Age: 66 Year
  Sex: Male
  Weight: 76 kg

DRUGS (25)
  1. VORICONAZOLE POWDER FOR SOLUTION FOR INFUSION [Suspect]
     Active Substance: VORICONAZOLE
     Indication: TRICHOSPORON INFECTION
     Dosage: 6 MILLIGRAM/KILOGRAM, ONCE A DAY
     Route: 042
  2. VORICONAZOLE POWDER FOR SOLUTION FOR INFUSION [Suspect]
     Active Substance: VORICONAZOLE
     Dosage: 8 MILLIGRAM/KILOGRAM, TWO TIMES A DAY
     Route: 042
     Dates: start: 20180719
  3. MUROMONAB-CD3 [Concomitant]
     Active Substance: MUROMONAB-CD3
     Indication: B-CELL TYPE ACUTE LEUKAEMIA
     Dosage: UNK
     Route: 065
     Dates: start: 201806
  4. BLINATUMOMAB [Concomitant]
     Active Substance: BLINATUMOMAB
     Indication: ACUTE LYMPHOCYTIC LEUKAEMIA
     Dosage: UNK, CYCLIC
     Route: 065
     Dates: start: 201806, end: 20180718
  5. BLINATUMOMAB [Concomitant]
     Active Substance: BLINATUMOMAB
     Indication: B PRECURSOR TYPE ACUTE LEUKAEMIA
  6. CASPOFUNGIN [Concomitant]
     Active Substance: CASPOFUNGIN
     Indication: EVIDENCE BASED TREATMENT
  7. DEXAMETHASONE. [Concomitant]
     Active Substance: DEXAMETHASONE
     Indication: PLASMA CELL MYELOMA
     Dosage: UNK
     Route: 065
  8. VORICONAZOLE POWDER FOR SOLUTION FOR INFUSION [Suspect]
     Active Substance: VORICONAZOLE
     Dosage: 6 MILLIGRAM/KILOGRAM, TWO TIMES A DAY
     Route: 042
     Dates: start: 20180718
  9. BLINATUMOMAB [Concomitant]
     Active Substance: BLINATUMOMAB
     Indication: PANCYTOPENIA
     Dosage: UNK
     Route: 065
  10. CASPOFUNGIN [Concomitant]
     Active Substance: CASPOFUNGIN
     Indication: FUNGAL INFECTION
  11. VORICONAZOLE POWDER FOR SOLUTION FOR INFUSION [Suspect]
     Active Substance: VORICONAZOLE
     Dosage: 2 MILLIGRAM PER MILLILITRE, TWO TIMES A DAY
     Route: 042
     Dates: start: 20180726, end: 20180801
  12. VORICONAZOLE POWDER FOR SOLUTION FOR INFUSION [Suspect]
     Active Substance: VORICONAZOLE
     Dosage: 12 MILLIGRAM/KILOGRAM, TWO TIMES A DAY
     Route: 042
     Dates: start: 20180718
  13. CASPOFUNGIN [Concomitant]
     Active Substance: CASPOFUNGIN
     Indication: TRICHOSPORON INFECTION
     Dosage: UNK
     Route: 065
     Dates: start: 20180706
  14. BORTEZOMIB. [Concomitant]
     Active Substance: BORTEZOMIB
     Indication: PLASMA CELL MYELOMA
     Dosage: UNK
     Route: 065
  15. VORICONAZOLE POWDER FOR SOLUTION FOR INFUSION [Suspect]
     Active Substance: VORICONAZOLE
     Dosage: 4 MILLIGRAM/KILOGRAM, TWO TIMES A DAY
     Route: 042
     Dates: start: 20180719
  16. BLINATUMOMAB [Concomitant]
     Active Substance: BLINATUMOMAB
     Indication: B-CELL TYPE ACUTE LEUKAEMIA
     Dosage: UNK
     Route: 065
  17. BLINATUMOMAB [Concomitant]
     Active Substance: BLINATUMOMAB
     Indication: ACUTE LYMPHOCYTIC LEUKAEMIA
  18. AMBISOME [Suspect]
     Active Substance: AMPHOTERICIN B
     Indication: FUNGAL INFECTION
     Dosage: 3 MILLIGRAM/KILOGRAM, DAILY (3 MG/KG, DAILY (LIPOSOMAL FORM))
     Route: 042
     Dates: start: 20180718, end: 20180828
  19. MUROMONAB-CD3 [Concomitant]
     Active Substance: MUROMONAB-CD3
     Indication: PANCYTOPENIA
     Dosage: UNK
     Route: 065
  20. LENALIDOMIDE [Concomitant]
     Active Substance: LENALIDOMIDE
     Indication: PLASMA CELL MYELOMA
     Dosage: UNK, CYCLICAL (33 CYCLES)
     Route: 065
  21. MELPHALAN. [Concomitant]
     Active Substance: MELPHALAN
     Indication: PLASMA CELL MYELOMA
     Dosage: UNK
     Route: 065
  22. VORICONAZOLE POWDER FOR SOLUTION FOR INFUSION [Suspect]
     Active Substance: VORICONAZOLE
     Indication: FUNGAL INFECTION
     Dosage: 2 MILLIGRAM/KILOGRAM, TWO TIMES A DAY
     Route: 065
  23. AMBISOME [Suspect]
     Active Substance: AMPHOTERICIN B
     Indication: TRICHOSPORON INFECTION
  24. AMBISOME [Suspect]
     Active Substance: AMPHOTERICIN B
     Indication: FUNGAEMIA
  25. CASPOFUNGIN [Concomitant]
     Active Substance: CASPOFUNGIN
     Indication: FEBRILE NEUTROPENIA

REACTIONS (12)
  - Trichosporon infection [Recovering/Resolving]
  - Leukopenia [Recovered/Resolved]
  - Hallucination [Recovered/Resolved]
  - Drug level increased [Recovered/Resolved]
  - Immunosuppression [Recovered/Resolved]
  - Neurotoxicity [Recovered/Resolved]
  - Rash erythematous [Recovered/Resolved]
  - Neurological symptom [Recovered/Resolved]
  - Febrile neutropenia [Recovered/Resolved]
  - Product use in unapproved indication [Unknown]
  - White blood cell count increased [Unknown]
  - Fungaemia [Unknown]

NARRATIVE: CASE EVENT DATE: 201807
